FAERS Safety Report 22193704 (Version 2)
Quarter: 2023Q2

REPORT INFORMATION
  Report Type: Spontaneous
  Country: AT (occurrence: AT)
  Receive Date: 20230410
  Receipt Date: 20230412
  Transmission Date: 20230722
  Serious: Yes (Other)
  Sender: FDA-Public Use
  Company Number: AT-INCYTE CORPORATION-2023IN002818

PATIENT

DRUGS (13)
  1. TAFASITAMAB [Suspect]
     Active Substance: TAFASITAMAB
     Indication: Diffuse large B-cell lymphoma
     Dosage: UNK, TOTAL OF 14 CYCLES
     Route: 065
     Dates: start: 2021
  2. LENALIDOMIDE [Suspect]
     Active Substance: LENALIDOMIDE
     Indication: Diffuse large B-cell lymphoma
     Dosage: 25 MILLIGRAM, TOTAL OF 4 CYCLES
     Route: 065
  3. LENALIDOMIDE [Suspect]
     Active Substance: LENALIDOMIDE
     Dosage: 10 MILLIGRAM
     Route: 065
  4. PANTOPRAZOLE [Concomitant]
     Active Substance: PANTOPRAZOLE
     Indication: Product used for unknown indication
     Dosage: 20 MILLIGRAM, 1-0-0
     Route: 065
  5. ASPIRIN [Concomitant]
     Active Substance: ASPIRIN
     Indication: Product used for unknown indication
     Dosage: 100 MILLIGRAM, 0-1-0-
     Route: 065
  6. TRAZODONE HYDROCHLORIDE [Concomitant]
     Active Substance: TRAZODONE HYDROCHLORIDE
     Indication: Product used for unknown indication
     Dosage: 150 MILLIGRAM, 0-0-0-2/3
     Route: 065
  7. SIMVASTATIN [Concomitant]
     Active Substance: SIMVASTATIN
     Indication: Product used for unknown indication
     Dosage: 40 MILLIGRAM, 0-0-1
     Route: 065
  8. CARVEDILOL [Concomitant]
     Active Substance: CARVEDILOL
     Indication: Product used for unknown indication
     Dosage: 25 MILLIGRAM,1/2-0-0
     Route: 065
  9. Nicolan [Concomitant]
     Indication: Product used for unknown indication
     Dosage: 20 MILLIGRAM, 0-0-1/2
     Route: 065
  10. FUROSEMIDE [Concomitant]
     Active Substance: FUROSEMIDE
     Indication: Product used for unknown indication
     Dosage: 40 MILLIGRAM, EVERY 2ND DAY
     Route: 065
  11. ALLOPURINOL [Concomitant]
     Active Substance: ALLOPURINOL
     Indication: Product used for unknown indication
     Dosage: 300 MILLIGRAM, 1/2-0-0
     Route: 065
  12. Oleovit (Dexpanthenol, Retinol) [Concomitant]
     Indication: Product used for unknown indication
     Dosage: 30 GTT PER WEEK
     Route: 065
  13. SERTRALINE HYDROCHLORIDE [Concomitant]
     Active Substance: SERTRALINE HYDROCHLORIDE
     Indication: Product used for unknown indication
     Dosage: 50 MILLIGRAM, 1-0-0
     Route: 065

REACTIONS (7)
  - Pancytopenia [Unknown]
  - Diffuse large B-cell lymphoma [Unknown]
  - Neutropenia [Unknown]
  - Thrombocytopenia [Unknown]
  - Disease progression [Unknown]
  - Constipation [Unknown]
  - Respiratory tract infection [Unknown]
